FAERS Safety Report 15223503 (Version 2)
Quarter: 2018Q3

REPORT INFORMATION
  Report Type: Report from Study
  Country: US (occurrence: US)
  Receive Date: 20180731
  Receipt Date: 20180906
  Transmission Date: 20181010
  Serious: Yes (Hospitalization)
  Sender: FDA-Public Use
  Company Number: PHHY2018US060804

PATIENT
  Age: 9 Year
  Sex: Female
  Weight: 19.9 kg

DRUGS (20)
  1. MARINOL [Concomitant]
     Active Substance: DRONABINOL
     Indication: NAUSEA
     Dosage: 5 MG, Q6H PRN
     Route: 048
     Dates: start: 20180515
  2. ALLOPURINOL. [Concomitant]
     Active Substance: ALLOPURINOL
     Indication: PROPHYLAXIS
     Dosage: 100 MG, TID
     Route: 048
  3. TOPOTECAN HYDROCHLORIDE. [Suspect]
     Active Substance: TOPOTECAN HYDROCHLORIDE
     Indication: NEOPLASM MALIGNANT
     Dosage: 0.75 MG/M2, Q3W (MAXIMUM 5 DAYS EVERY 21 DAYS)
     Route: 042
     Dates: start: 20180614, end: 20180618
  4. MARINOL [Concomitant]
     Active Substance: DRONABINOL
     Indication: VOMITING
  5. GLUCOSE [Concomitant]
     Active Substance: DEXTROSE
     Indication: PROPHYLAXIS
     Dosage: 1000 ML, QD
     Route: 042
     Dates: start: 20180523, end: 20180524
  6. VENETOCLAX. [Suspect]
     Active Substance: VENETOCLAX
     Indication: NEOPLASM MALIGNANT
     Dosage: 170 MG, QD
     Route: 065
     Dates: start: 20180523, end: 20180523
  7. ACETAMINOPHEN. [Concomitant]
     Active Substance: ACETAMINOPHEN
     Indication: ABDOMINAL PAIN
     Dosage: 240 MG, Q4H
     Route: 048
     Dates: start: 20180507
  8. METOCLOPRAMIDE. [Concomitant]
     Active Substance: METOCLOPRAMIDE
     Indication: VOMITING
  9. GLUCOSE [Concomitant]
     Active Substance: DEXTROSE
     Indication: DECREASED APPETITE
     Dosage: 500 ML, QD
     Route: 042
     Dates: start: 20180317, end: 20180522
  10. ACETAMINOPHEN. [Concomitant]
     Active Substance: ACETAMINOPHEN
     Indication: FEBRILE NEUTROPENIA
  11. ONDANSETRON [Concomitant]
     Active Substance: ONDANSETRON
     Indication: NAUSEA
     Dosage: 2 MG, TID
     Route: 048
     Dates: start: 20180326
  12. VENETOCLAX. [Suspect]
     Active Substance: VENETOCLAX
     Dosage: 350 MG, QD
     Route: 065
     Dates: start: 20180524, end: 20180621
  13. CYCLOPHOSPHAMIDE. [Suspect]
     Active Substance: CYCLOPHOSPHAMIDE
     Indication: NEOPLASM MALIGNANT
     Dosage: 250 MG/M2, Q3W (MAXIMUM 5 DAYS EVERY 21 DAYS)
     Route: 042
     Dates: start: 20180614, end: 20180618
  14. GLUCOSE [Concomitant]
     Active Substance: DEXTROSE
     Indication: PROPHYLAXIS AGAINST DEHYDRATION
     Dosage: 1000 ML, ONCE/SINGLE
     Route: 042
     Dates: start: 20180608, end: 20180608
  15. NEULASTA [Concomitant]
     Active Substance: PEGFILGRASTIM
     Indication: PROPHYLAXIS
  16. METOCLOPRAMIDE. [Concomitant]
     Active Substance: METOCLOPRAMIDE
     Indication: NAUSEA
     Dosage: 10 MG, QID PRN
     Route: 048
     Dates: start: 20151228
  17. GLUCOSE [Concomitant]
     Active Substance: DEXTROSE
     Dosage: 3000 ML, UNK
     Route: 042
     Dates: start: 20180614, end: 20180615
  18. NEULASTA [Concomitant]
     Active Substance: PEGFILGRASTIM
     Indication: NEUTROPENIA
     Dosage: 2 MG, ONCE/SINGLE
     Route: 058
     Dates: start: 20180620, end: 20180620
  19. BACTRIM [Concomitant]
     Active Substance: SULFAMETHOXAZOLE\TRIMETHOPRIM
     Indication: INFECTION PROPHYLAXIS
     Dosage: 15 ML, MONDAY, WEDNESDAY AND FRIDAY
     Route: 048
     Dates: start: 20180316
  20. LORAZEPAM. [Concomitant]
     Active Substance: LORAZEPAM
     Indication: NAUSEA
     Dosage: 0.26 MG, Q4H PRN
     Route: 048
     Dates: start: 20180317

REACTIONS (8)
  - Fanconi syndrome [Unknown]
  - Febrile neutropenia [Recovered/Resolved]
  - Abnormal faeces [Recovered/Resolved]
  - Electrolyte imbalance [Unknown]
  - Renal tubular injury [Unknown]
  - Metabolic acidosis [Unknown]
  - Vomiting [Recovering/Resolving]
  - Refeeding syndrome [Unknown]

NARRATIVE: CASE EVENT DATE: 20180622
